FAERS Safety Report 7043783-7 (Version None)
Quarter: 2010Q4

REPORT INFORMATION
  Report Type: 
  Country: None (occurrence: None)
  Receive Date: 20101008
  Receipt Date: 20101008
  Transmission Date: 20110411
  Serious: No
  Sender: FDA-Public Use
  Company Number: None

PATIENT
  Sex: Female
  Weight: 43.0917 kg

DRUGS (3)
  1. MEBENDAZOLE [Suspect]
     Indication: HELMINTHIC INFECTION
     Dosage: 1 TABLET 2X A  DAY 100 MG
     Dates: start: 20100413
  2. MEBENDAZOLE [Suspect]
     Indication: HELMINTHIC INFECTION
     Dosage: 1 TABLET 2X A  DAY 100 MG
     Dates: start: 20100414
  3. TETRACLINE [Concomitant]

REACTIONS (5)
  - ABDOMINAL DISTENSION [None]
  - HEART RATE INCREASED [None]
  - MALAISE [None]
  - UNEVALUABLE EVENT [None]
  - WEIGHT DECREASED [None]
